FAERS Safety Report 17159065 (Version 1)
Quarter: 2019Q4

REPORT INFORMATION
  Report Type: Spontaneous
  Country: US (occurrence: US)
  Receive Date: 20191214
  Receipt Date: 20191214
  Transmission Date: 20200122
  Serious: Yes (Other)
  Sender: FDA-Public Use
  Company Number: None

PATIENT
  Age: 41 Year
  Sex: Female
  Weight: 59 kg

DRUGS (3)
  1. MOXIFLOXACIN. [Suspect]
     Active Substance: MOXIFLOXACIN
     Indication: TOOTH EXTRACTION
     Route: 048
     Dates: start: 20190617, end: 20190619
  2. CLINDAMYCIN. [Concomitant]
     Active Substance: CLINDAMYCIN
     Dates: start: 20190617, end: 20190708
  3. MOXIFLOXACIN. [Suspect]
     Active Substance: MOXIFLOXACIN
     Indication: SUBCUTANEOUS ABSCESS
     Route: 048
     Dates: start: 20190617, end: 20190619

REACTIONS (6)
  - Leukopenia [None]
  - Pyrexia [None]
  - Insomnia [None]
  - Arthralgia [None]
  - Neutropenia [None]
  - Rash [None]

NARRATIVE: CASE EVENT DATE: 20190617
